FAERS Safety Report 19810531 (Version 1)
Quarter: 2021Q3

REPORT INFORMATION
  Report Type: Spontaneous
  Country: CA (occurrence: CA)
  Receive Date: 20210909
  Receipt Date: 20210909
  Transmission Date: 20211014
  Serious: Yes (Life-Threatening, Other)
  Sender: FDA-Public Use
  Company Number: CA-ADIENNEP-2021AD000465

PATIENT
  Age: 3 Year
  Sex: Female
  Weight: 12 kg

DRUGS (33)
  1. ATROPINE. [Concomitant]
     Active Substance: ATROPINE
  2. DEXMEDETOMIDINE. [Concomitant]
     Active Substance: DEXMEDETOMIDINE
  3. ONDANSETRON [Concomitant]
     Active Substance: ONDANSETRON
  4. CETIRIZINE [Concomitant]
     Active Substance: CETIRIZINE HYDROCHLORIDE
  5. THIOTEPA. [Suspect]
     Active Substance: THIOTEPA
     Indication: PROPHYLAXIS AGAINST TRANSPLANT REJECTION
     Route: 042
  6. CHOLECALCIFEROL [Concomitant]
     Active Substance: CHOLECALCIFEROL
  7. FLUCONAZOLE. [Concomitant]
     Active Substance: FLUCONAZOLE
  8. METOCLOPRAMIDE. [Concomitant]
     Active Substance: METOCLOPRAMIDE
  9. URSODEOXYCHOLIC ACID [Concomitant]
     Active Substance: URSODIOL
  10. MAGNESIUM [Concomitant]
     Active Substance: MAGNESIUM
  11. METOLAZONE. [Concomitant]
     Active Substance: METOLAZONE
  12. MONTELUKAST [Concomitant]
     Active Substance: MONTELUKAST SODIUM
  13. MYCAMINE [Concomitant]
     Active Substance: MICAFUNGIN SODIUM
  14. ACYCLOVIR. [Concomitant]
     Active Substance: ACYCLOVIR
  15. METHYLPREDNISOLONE. [Concomitant]
     Active Substance: METHYLPREDNISOLONE
  16. ROCURONIUM [Concomitant]
     Active Substance: ROCURONIUM BROMIDE
  17. FUROSEMIDE. [Concomitant]
     Active Substance: FUROSEMIDE
  18. LORAZEPAM. [Concomitant]
     Active Substance: LORAZEPAM
  19. NOREPINEPHRINE. [Concomitant]
     Active Substance: NOREPINEPHRINE
  20. POTASSIUM [Concomitant]
     Active Substance: POTASSIUM
  21. CARBOPLATIN. [Suspect]
     Active Substance: CARBOPLATIN
     Indication: PROPHYLAXIS AGAINST TRANSPLANT REJECTION
     Route: 042
  22. CEFTAZIDIME. [Concomitant]
     Active Substance: CEFTAZIDIME
  23. FAMOTIDINE. [Concomitant]
     Active Substance: FAMOTIDINE
  24. LEVETIRACETAM. [Concomitant]
     Active Substance: LEVETIRACETAM
     Dosage: ()
     Route: 065
  25. MEROPENEM. [Concomitant]
     Active Substance: MEROPENEM
  26. MIDAZOLAM INJECTION [Concomitant]
     Active Substance: MIDAZOLAM HYDROCHLORIDE
  27. CARBOPLATIN. [Suspect]
     Active Substance: CARBOPLATIN
     Indication: PROPHYLAXIS AGAINST TRANSPLANT REJECTION
     Route: 042
  28. OLANZAPINE. [Concomitant]
     Active Substance: OLANZAPINE
  29. TRIMETHOPRIM?SULFAMETHOXAZOLE [Concomitant]
     Active Substance: SULFAMETHOXAZOLE\TRIMETHOPRIM
  30. HYDROXYZINE [Concomitant]
     Active Substance: HYDROXYZINE HYDROCHLORIDE
  31. PENTAM [Concomitant]
     Active Substance: PENTAMIDINE ISETHIONATE
  32. PROBENECID. [Concomitant]
     Active Substance: PROBENECID
  33. VISTIDE [Concomitant]
     Active Substance: CIDOFOVIR

REACTIONS (3)
  - Aplastic anaemia [Not Recovered/Not Resolved]
  - Febrile neutropenia [Not Recovered/Not Resolved]
  - Mucosal inflammation [Not Recovered/Not Resolved]
